FAERS Safety Report 16813234 (Version 5)
Quarter: 2019Q4

REPORT INFORMATION
  Report Type: Spontaneous
  Country: HU (occurrence: HU)
  Receive Date: 20190916
  Receipt Date: 20191213
  Transmission Date: 20200122
  Serious: Yes (Other)
  Sender: FDA-Public Use
  Company Number: PHHY2019HU212080

PATIENT
  Age: 38 Year
  Sex: Female

DRUGS (10)
  1. ACYCLOVIR. [Concomitant]
     Active Substance: ACYCLOVIR
     Indication: PRODUCT USED FOR UNKNOWN INDICATION
     Dosage: 400 MG, 2X/DAY BID (800MG DAILY)
     Route: 065
  2. CYTARABINE. [Suspect]
     Active Substance: CYTARABINE
     Indication: PRODUCT USED FOR UNKNOWN INDICATION
     Dosage: UNK
     Route: 065
  3. MITOXANTRONE [Concomitant]
     Active Substance: MITOXANTRONE HYDROCHLORIDE
     Indication: PRODUCT USED FOR UNKNOWN INDICATION
     Dosage: UNK
     Route: 065
  4. PANTOPRAZOLE [Suspect]
     Active Substance: PANTOPRAZOLE
     Dosage: 40 MG, UNK
     Route: 065
  5. FILGRASTIM [Suspect]
     Active Substance: FILGRASTIM
     Indication: PRODUCT USED FOR UNKNOWN INDICATION
     Dosage: UNK
     Route: 065
  6. RYDAPT [Suspect]
     Active Substance: MIDOSTAURIN
     Indication: ACUTE MYELOID LEUKAEMIA
     Dosage: 50 MG, BID (TWICE A DAY)
     Route: 065
     Dates: start: 201904
  7. RYDAPT [Suspect]
     Active Substance: MIDOSTAURIN
     Dosage: 50 MG, BID (TWICE A DAY)
     Route: 065
  8. PANTOPRAZOLE [Suspect]
     Active Substance: PANTOPRAZOLE
     Indication: PRODUCT USED FOR UNKNOWN INDICATION
     Dosage: 40 MG, UNK
     Route: 065
  9. CLADRIBINE. [Concomitant]
     Active Substance: CLADRIBINE
     Indication: PRODUCT USED FOR UNKNOWN INDICATION
     Dosage: UNK
     Route: 065
  10. ALLOPURINOL. [Suspect]
     Active Substance: ALLOPURINOL
     Indication: PRODUCT USED FOR UNKNOWN INDICATION
     Dosage: 300 MG, UNK
     Route: 065

REACTIONS (8)
  - Megacolon [Unknown]
  - Wound secretion [Unknown]
  - Abdominal wall wound [Unknown]
  - Sepsis [Unknown]
  - Pancytopenia [Unknown]
  - Drug ineffective [Unknown]
  - Acute myeloid leukaemia recurrent [Unknown]
  - Retinal haemorrhage [Unknown]

NARRATIVE: CASE EVENT DATE: 201906
